FAERS Safety Report 8919752 (Version 1)
Quarter: 2012Q4

REPORT INFORMATION
  Report Type: 
  Country: US (occurrence: US)
  Receive Date: 20121121
  Receipt Date: 20121121
  Transmission Date: 20130627
  Serious: No
  Sender: FDA-Public Use
  Company Number: US-BIOGENIDEC-2012BI053049

PATIENT
  Age: 53 Year
  Sex: Female

DRUGS (3)
  1. AVONEX [Suspect]
     Indication: MULTIPLE SCLEROSIS
     Route: 030
     Dates: start: 20121022
  2. AVONEX [Suspect]
     Indication: MULTIPLE SCLEROSIS
     Route: 030
     Dates: start: 20121029
  3. AVONEX [Suspect]
     Indication: MULTIPLE SCLEROSIS
     Route: 030
     Dates: start: 20121105

REACTIONS (5)
  - Gait disturbance [Recovered/Resolved]
  - Respiratory tract congestion [Not Recovered/Not Resolved]
  - Eye discharge [Recovered/Resolved]
  - Pneumonia [Not Recovered/Not Resolved]
  - Extrasystoles [Not Recovered/Not Resolved]
